FAERS Safety Report 20509824 (Version 1)
Quarter: 2022Q1

REPORT INFORMATION
  Report Type: Spontaneous
  Country: US (occurrence: US)
  Receive Date: 20220224
  Receipt Date: 20220224
  Transmission Date: 20220424
  Serious: Yes (Life-Threatening, Other)
  Sender: FDA-Public Use
  Company Number: US-MLMSERVICE-20220210-3368006-1

PATIENT
  Age: 62 Year
  Sex: Male

DRUGS (4)
  1. FLUOROURACIL [Suspect]
     Active Substance: FLUOROURACIL
     Indication: HER2 positive gastric cancer
     Dates: start: 201908
  2. DOCETAXEL [Suspect]
     Active Substance: DOCETAXEL
     Indication: HER2 positive gastric cancer
     Dates: start: 201908
  3. OXALIPLATIN [Suspect]
     Active Substance: OXALIPLATIN
     Indication: HER2 positive gastric cancer
     Dates: start: 201908
  4. LEUCOVORIN [Suspect]
     Active Substance: LEUCOVORIN
     Indication: HER2 positive gastric cancer
     Dates: start: 201908, end: 201909

REACTIONS (3)
  - Neutropenic colitis [Recovered/Resolved]
  - Hepatitis [Recovered/Resolved]
  - Off label use [Unknown]

NARRATIVE: CASE EVENT DATE: 20190901
